FAERS Safety Report 7354550-9 (Version None)
Quarter: 2011Q1

REPORT INFORMATION
  Report Type: 
  Country: None (occurrence: None)
  Receive Date: 20110316
  Receipt Date: 20110215
  Transmission Date: 20110831
  Serious: Yes (Hospitalization)
  Sender: FDA-Public Use
  Company Number: US-BAYER-200929039NA

PATIENT
  Sex: Female
  Weight: 75 kg

DRUGS (13)
  1. MOTRIN [Concomitant]
  2. HYDROCODONE BITARTRATE AND ACETAMINOPHEN [Concomitant]
     Dosage: 5/500. 04-APR-2007
     Route: 065
  3. CALNATE [Concomitant]
  4. FOLIC ACID [Concomitant]
  5. ZITHROMAX [Concomitant]
  6. UNCODEABLE ^UNCLASSIFIABLE^ [Concomitant]
  7. YAZ [Suspect]
     Indication: CONTRACEPTION
     Dosage: UNK UNK, UNK
     Route: 048
     Dates: start: 20070501, end: 20071001
  8. PROPOXYPHENE [Concomitant]
     Route: 065
     Dates: start: 20060207, end: 20070403
  9. IBUPROFEN [Concomitant]
     Dosage: 03-APR-2007
     Route: 065
  10. UNCODEABLE ^UNCLASSIFIABLE^ [Concomitant]
  11. PENICILLIN VK [Concomitant]
     Route: 065
     Dates: start: 20060711, end: 20061005
  12. AMOXICILLIN [Concomitant]
     Dosage: 12-FEB-2007
     Route: 065
  13. NIFEDIPINE [Concomitant]
     Dosage: 03-APR-2007
     Route: 065

REACTIONS (5)
  - DEEP VEIN THROMBOSIS [None]
  - PAIN [None]
  - ARTHRALGIA [None]
  - MENTAL DISORDER [None]
  - MUSCLE STRAIN [None]
